FAERS Safety Report 24085897 (Version 2)
Quarter: 2024Q3

REPORT INFORMATION
  Report Type: Spontaneous
  Country: CN (occurrence: None)
  Receive Date: 20240712
  Receipt Date: 20240718
  Transmission Date: 20241017
  Serious: Yes (Life-Threatening, Hospitalization, Other)
  Sender: ASTRAZENECA
  Company Number: 2024A159367

PATIENT
  Age: 31 Week
  Weight: 0.9 kg

DRUGS (5)
  1. TICAGRELOR [Suspect]
     Active Substance: TICAGRELOR
     Indication: Chest pain
     Dosage: UNK
     Route: 064
  2. ROSUVASTATIN [Suspect]
     Active Substance: ROSUVASTATIN
     Indication: Chest pain
     Dosage: UNK
     Route: 064
  3. ASPIRIN [Suspect]
     Active Substance: ASPIRIN
     Indication: Chest pain
     Dosage: UNK
     Route: 064
  4. FUROSEMIDE [Suspect]
     Active Substance: FUROSEMIDE
     Indication: Foetal exposure during pregnancy
     Dosage: UNK
     Route: 064
  5. SODIUM BICARBONATE [Suspect]
     Active Substance: SODIUM BICARBONATE
     Indication: Foetal exposure during pregnancy
     Dosage: UNK
     Route: 064

REACTIONS (10)
  - Respiratory distress [Recovered/Resolved]
  - Slow response to stimuli [Recovered/Resolved]
  - Hydrocephalus [Recovered/Resolved]
  - Apnoea [Recovered/Resolved]
  - Pallor [Recovered/Resolved]
  - Heart rate decreased [Recovered/Resolved]
  - Apgar score low [Recovered/Resolved]
  - Low birth weight baby [Recovered/Resolved]
  - Foetal distress syndrome [Unknown]
  - Foetal exposure during pregnancy [Unknown]
